FAERS Safety Report 18630821 (Version 1)
Quarter: 2020Q4

REPORT INFORMATION
  Report Type: Spontaneous
  Country: US (occurrence: US)
  Receive Date: 20201218
  Receipt Date: 20201218
  Transmission Date: 20210114
  Serious: No
  Sender: FDA-Public Use
  Company Number: US-UNITED THERAPEUTICS-UNT-2020-017722

PATIENT
  Age: 2 Year
  Sex: Female
  Weight: 13.15 kg

DRUGS (6)
  1. REMODULIN [Suspect]
     Active Substance: TREPROSTINIL
     Dosage: 0.0927 ?G/KG, CONTINUING
     Route: 058
  2. REVATIO [Suspect]
     Active Substance: SILDENAFIL CITRATE
     Indication: PRODUCT USED FOR UNKNOWN INDICATION
     Dosage: 14 MG, Q8H
     Route: 065
  3. REMODULIN [Suspect]
     Active Substance: TREPROSTINIL
     Indication: PULMONARY ARTERIAL HYPERTENSION
     Dosage: UNK, CONTINUING
     Route: 058
     Dates: start: 20190415
  4. REMODULIN [Suspect]
     Active Substance: TREPROSTINIL
     Dosage: 0.0988 ?G/KG, CONTINUING
     Route: 058
  5. REMODULIN [Suspect]
     Active Substance: TREPROSTINIL
     Indication: PULMONARY ARTERIAL HYPERTENSION
     Dosage: UNK, CONTINUING
     Route: 058
     Dates: start: 20190415
  6. TRACLEER [Concomitant]
     Active Substance: BOSENTAN
     Indication: PRODUCT USED FOR UNKNOWN INDICATION
     Dosage: UNK
     Route: 065

REACTIONS (5)
  - Infusion site pain [Recovered/Resolved]
  - Infusion site reaction [Recovered/Resolved]
  - Infusion site erythema [Recovered/Resolved]
  - Blood pressure abnormal [Recovered/Resolved]
  - Infusion site irritation [Recovered/Resolved]

NARRATIVE: CASE EVENT DATE: 2020
